FAERS Safety Report 9447827 (Version 1)
Quarter: 2013Q3

REPORT INFORMATION
  Report Type: Spontaneous
  Country: US (occurrence: None)
  Receive Date: 20130807
  Receipt Date: 20130807
  Transmission Date: 20140515
  Serious: Yes (Disabling, Other)
  Sender: FDA-Public Use
  Company Number: None

PATIENT
  Age: 39 Year
  Sex: Male
  Weight: 52.16 kg

DRUGS (1)
  1. CIPRO 500 MG COBRA [Suspect]
     Indication: PROSTATITIS
     Route: 048

REACTIONS (4)
  - Myalgia [None]
  - Tinnitus [None]
  - Anxiety [None]
  - Tendon disorder [None]
